FAERS Safety Report 21151580 (Version 4)
Quarter: 2022Q3

REPORT INFORMATION
  Report Type: Spontaneous
  Country: FR (occurrence: FR)
  Receive Date: 20220730
  Receipt Date: 20220926
  Transmission Date: 20221026
  Serious: Yes (Other)
  Sender: FDA-Public Use
  Company Number: FR-AFSSAPS-DJ20221416

PATIENT
  Age: 88 Year
  Sex: Male
  Weight: 67 kg

DRUGS (3)
  1. AZTREONAM [Suspect]
     Active Substance: AZTREONAM
     Indication: Bacteraemia
     Route: 065
     Dates: start: 20220608, end: 20220611
  2. CEFOTAXIME SODIUM [Suspect]
     Active Substance: CEFOTAXIME SODIUM
     Indication: Bacteraemia
     Route: 065
     Dates: start: 20220605, end: 20220608
  3. AMIKACIN [Suspect]
     Active Substance: AMIKACIN
     Indication: Bacteraemia
     Dosage: 1 INJECTION ON 06-JUN AND 1 INJECTION ON 9-SEP-2022
     Route: 065
     Dates: start: 20220606, end: 20220609

REACTIONS (1)
  - Cholestasis [Recovering/Resolving]

NARRATIVE: CASE EVENT DATE: 20220611
